FAERS Safety Report 16348781 (Version 1)
Quarter: 2019Q2

REPORT INFORMATION
  Report Type: Spontaneous
  Country: DE (occurrence: DE)
  Receive Date: 20190523
  Receipt Date: 20190523
  Transmission Date: 20190711
  Serious: Yes (Other)
  Sender: FDA-Public Use
  Company Number: DE-JNJFOC-20190528450

PATIENT
  Age: 18 Year

DRUGS (8)
  1. PROCARBAZINE [Suspect]
     Active Substance: PROCARBAZINE
     Indication: HODGKIN^S DISEASE STAGE IV
     Route: 065
  2. BRENTUXIMAB VEDOTIN [Suspect]
     Active Substance: BRENTUXIMAB VEDOTIN
     Indication: HODGKIN^S DISEASE STAGE IV
     Route: 065
  3. DOXORUBICIN HYDROCHLORIDE. [Suspect]
     Active Substance: DOXORUBICIN HYDROCHLORIDE
     Indication: HODGKIN^S DISEASE STAGE IV
     Route: 065
  4. ETOPOSIDE. [Suspect]
     Active Substance: ETOPOSIDE
     Indication: HODGKIN^S DISEASE STAGE IV
     Route: 065
  5. PREDNISOLONE. [Suspect]
     Active Substance: PREDNISOLONE
     Indication: HODGKIN^S DISEASE STAGE IV
     Route: 065
  6. CYCLOPHOSPHAMIDE. [Suspect]
     Active Substance: CYCLOPHOSPHAMIDE
     Indication: HODGKIN^S DISEASE STAGE IV
     Route: 065
  7. ONCOVIN [Suspect]
     Active Substance: VINCRISTINE SULFATE
     Indication: HODGKIN^S DISEASE STAGE IV
     Route: 065
  8. BLEOMYCIN [Suspect]
     Active Substance: BLEOMYCIN SULFATE
     Indication: HODGKIN^S DISEASE STAGE IV
     Route: 065

REACTIONS (5)
  - Hodgkin^s disease recurrent [Unknown]
  - Malignant neoplasm progression [Unknown]
  - Off label use [Unknown]
  - Product use in unapproved indication [Unknown]
  - Hodgkin^s disease stage IV [Unknown]
